FAERS Safety Report 20777344 (Version 1)
Quarter: 2022Q2

REPORT INFORMATION
  Report Type: Spontaneous
  Country: US (occurrence: US)
  Receive Date: 20220503
  Receipt Date: 20220503
  Transmission Date: 20220721
  Serious: Yes (Hospitalization)
  Sender: FDA-Public Use
  Company Number: US-LUPIN PHARMACEUTICALS INC.-2022-06379

PATIENT
  Age: 54 Year
  Sex: Male

DRUGS (6)
  1. HYDROMORPHONE [Suspect]
     Active Substance: HYDROMORPHONE
     Indication: Headache
     Dosage: 0.2 MG, PRN-WITH A MAXIMUM OF 1 MG/H
     Route: 065
  2. HYDROMORPHONE [Suspect]
     Active Substance: HYDROMORPHONE
     Dosage: 1 MG
     Route: 065
  3. OXYCODONE AND ACETAMINOPHEN [Suspect]
     Active Substance: ACETAMINOPHEN\OXYCODONE HYDROCHLORIDE
     Indication: Headache
     Dosage: 1 DOSAGE FORM, PRN EVERY 4H AS NEEDED, 1 TO 2 DOSES
     Route: 048
  4. KETOROLAC [Suspect]
     Active Substance: KETOROLAC TROMETHAMINE
     Indication: Headache
     Dosage: 30 MG, EVERY 6 HOURS AS NEEDED WITH 3 TOTAL DOSES
     Route: 042
  5. BUPIVACAINE [Suspect]
     Active Substance: BUPIVACAINE
     Indication: Headache
     Dosage: 3 MILLILITER
     Route: 065
  6. EPINEPHRINE [Suspect]
     Active Substance: EPINEPHRINE
     Indication: Headache
     Dosage: 8 MILLILITER (1:200,000, 3 AND 8 ML)
     Route: 065

REACTIONS (2)
  - Therapy non-responder [Unknown]
  - Somnolence [Recovering/Resolving]
